FAERS Safety Report 7820472-X (Version None)
Quarter: 2011Q4

REPORT INFORMATION
  Report Type: 
  Country: None (occurrence: None)
  Receive Date: 20111018
  Receipt Date: 20111007
  Transmission Date: 20120403
  Serious: Yes (Death)
  Sender: FDA-Public Use
  Company Number: GB-BAXTER-2011BH031762

PATIENT
  Sex: Male

DRUGS (3)
  1. FEIBA [Suspect]
     Indication: WRONG DRUG ADMINISTERED
     Route: 065
     Dates: start: 20110701, end: 20110701
  2. ANTIBIOTICS [Concomitant]
     Indication: OSTEOMYELITIS
     Route: 065
  3. CARDIOVASCULAR SYSTEM DRUGS [Concomitant]
     Indication: PERIPHERAL VASCULAR DISORDER
     Route: 065

REACTIONS (2)
  - WRONG DRUG ADMINISTERED [None]
  - CEREBROVASCULAR ACCIDENT [None]
